FAERS Safety Report 4662328-X (Version None)
Quarter: 2005Q2

REPORT INFORMATION
  Report Type: 
  Country: None (occurrence: None)
  Receive Date: 20050516
  Receipt Date: 20050509
  Transmission Date: 20051028
  Serious: Yes (Hospitalization)
  Sender: FDA-Public Use
  Company Number: DE-BOEHRINGER INGELHEIM PHARMACEUTICALS, INC.-2005-DE-01759DE

PATIENT
  Sex: Male
  Weight: 70 kg

DRUGS (4)
  1. VIRAMUNE [Suspect]
     Dosage: 1X10 TABLETS
     Route: 048
  2. BROMAZANIL [Suspect]
     Dosage: 1X20 TABLETS
     Route: 048
  3. EPIVIR [Suspect]
     Dosage: 1X10 TABLETS
     Route: 048
  4. ZERIT [Suspect]
     Dosage: 1X10 CAPSULES
     Route: 048

REACTIONS (3)
  - DRUG ABUSER [None]
  - SUICIDE ATTEMPT [None]
  - VOMITING [None]
